FAERS Safety Report 16120293 (Version 2)
Quarter: 2019Q1

REPORT INFORMATION
  Report Type: Spontaneous
  Country: US (occurrence: US)
  Receive Date: 20190326
  Receipt Date: 20190329
  Transmission Date: 20190418
  Serious: No
  Sender: FDA-Public Use
  Company Number: US-009507513-1903USA010130

PATIENT
  Sex: Female

DRUGS (10)
  1. IRON (UNSPECIFIED) [Concomitant]
     Active Substance: IRON
  2. BUPROPION. [Concomitant]
     Active Substance: BUPROPION
  3. PAROXETINE. [Concomitant]
     Active Substance: PAROXETINE
  4. GLIMEPIRIDE. [Concomitant]
     Active Substance: GLIMEPIRIDE
  5. OXYBUTYNIN. [Concomitant]
     Active Substance: OXYBUTYNIN CHLORIDE
  6. ATORVASTATIN [Concomitant]
     Active Substance: ATORVASTATIN
     Dosage: UNK
  7. VITAMIN D [Concomitant]
     Active Substance: CHOLECALCIFEROL
  8. JANUVIA [Suspect]
     Active Substance: SITAGLIPTIN PHOSPHATE
     Indication: BLOOD GLUCOSE INCREASED
     Dosage: 1 TABLET, DAILY
     Route: 048
     Dates: start: 201812, end: 201902
  9. METFORMIN [Concomitant]
     Active Substance: METFORMIN HYDROCHLORIDE
  10. ROPINIROLE. [Concomitant]
     Active Substance: ROPINIROLE

REACTIONS (3)
  - Genital swelling [Recovered/Resolved]
  - Genital burning sensation [Recovered/Resolved]
  - Discomfort [Recovered/Resolved]
